FAERS Safety Report 8707359 (Version 2)
Quarter: 2012Q4

REPORT INFORMATION
  Report Type: 
  Country: US (occurrence: US)
  Receive Date: 20120803
  Receipt Date: 20120829
  Transmission Date: 20130627
  Serious: Yes (Other)
  Sender: FDA-Public Use
  Company Number: US-ASTRAZENECA-2012SE53084

PATIENT
  Age: 60 Year
  Sex: Female

DRUGS (4)
  1. NEXIUM [Suspect]
     Route: 048
  2. PLAVIX [Concomitant]
  3. OMEPRAZOLE [Concomitant]
  4. TUMS [Concomitant]

REACTIONS (3)
  - Renal failure [Unknown]
  - Diarrhoea [Unknown]
  - Abdominal discomfort [Unknown]
